FAERS Safety Report 5802692-9 (Version None)
Quarter: 2008Q3

REPORT INFORMATION
  Report Type: 
  Country: None (occurrence: None)
  Receive Date: 20080703
  Receipt Date: 20080625
  Transmission Date: 20090109
  Serious: Yes (Other)
  Sender: FDA-Public Use
  Company Number: S06-USA-04273-01

PATIENT
  Age: 64 Year
  Sex: Female

DRUGS (9)
  1. THYROID TAB [Suspect]
     Indication: HYPOTHYROIDISM
     Dosage: 120 MG QD PO
     Route: 048
     Dates: start: 19970101, end: 20080521
  2. THYROID TAB [Suspect]
     Indication: HYPOTHYROIDISM
     Dosage: 60 MG QD PO
     Route: 048
     Dates: start: 20080606
  3. HYDROCHLOROTHIAZIDE [Concomitant]
  4. DIGITALIS TAB [Concomitant]
  5. FUROSEMIDE [Concomitant]
  6. COMPLEX [Concomitant]
  7. POTASSIUM CHLORIDE [Concomitant]
  8. MULTI-VITAMIN [Concomitant]
  9. GARLIC [Concomitant]

REACTIONS (7)
  - ABNORMAL SENSATION IN EYE [None]
  - BLOOD PARATHYROID HORMONE INCREASED [None]
  - FATIGUE [None]
  - FEELING ABNORMAL [None]
  - NEPHROLITHIASIS [None]
  - OEDEMA PERIPHERAL [None]
  - SWELLING FACE [None]
